FAERS Safety Report 18659632 (Version 1)
Quarter: 2020Q4

REPORT INFORMATION
  Report Type: Spontaneous
  Country: US (occurrence: US)
  Receive Date: 20201224
  Receipt Date: 20201224
  Transmission Date: 20210114
  Serious: No
  Sender: FDA-Public Use
  Company Number: US-IGSA-BIG0012579

PATIENT
  Age: 68 Year
  Sex: Male
  Weight: 91 kg

DRUGS (3)
  1. GAMUNEX-C [Suspect]
     Active Substance: HUMAN IMMUNOGLOBULIN G
     Indication: CHRONIC INFLAMMATORY DEMYELINATING POLYRADICULONEUROPATHY
     Dosage: 80 GRAM, TOTAL
     Route: 042
     Dates: start: 20201211, end: 20201211
  2. GAMUNEX-C [Suspect]
     Active Substance: HUMAN IMMUNOGLOBULIN G
     Dosage: 10 GRAM, TOTAL
     Route: 042
     Dates: start: 20201211, end: 20201211
  3. GAMUNEX-C [Suspect]
     Active Substance: HUMAN IMMUNOGLOBULIN G
     Dosage: 90 GRAM, PER CYCLE
     Dates: start: 20191202

REACTIONS (2)
  - Urticaria [Recovered/Resolved]
  - Pruritus [Recovered/Resolved]

NARRATIVE: CASE EVENT DATE: 20201211
